FAERS Safety Report 18275535 (Version 2)
Quarter: 2020Q3

REPORT INFORMATION
  Report Type: Report from Study
  Country: JP (occurrence: JP)
  Receive Date: 20200917
  Receipt Date: 20200927
  Transmission Date: 20201103
  Serious: Yes (Other)
  Sender: FDA-Public Use
  Company Number: JP-BEH-2020122353

PATIENT

DRUGS (1)
  1. HUMAN IMMUNOGLOBULIN (NON?COMPANY) [Suspect]
     Active Substance: HUMAN IMMUNOGLOBULIN G
     Indication: KAWASAKI^S DISEASE
     Dosage: 2 GRAM PER KILOGRAM
     Route: 042

REACTIONS (1)
  - Acute coronary syndrome [Unknown]
